FAERS Safety Report 8479344-2 (Version None)
Quarter: 2012Q2

REPORT INFORMATION
  Report Type: 
  Country: None (occurrence: None)
  Receive Date: 20120629
  Receipt Date: 20120621
  Transmission Date: 20120825
  Serious: Yes (Hospitalization)
  Sender: FDA-Public Use
  Company Number: JP-JNJFOC-20120608535

PATIENT
  Age: 85 Year
  Sex: Female

DRUGS (5)
  1. VALTREX [Concomitant]
     Route: 048
     Dates: start: 20120519, end: 20120606
  2. FLUCONAZOLE [Suspect]
     Indication: PRODUCT USED FOR UNKNOWN INDICATION
     Route: 065
     Dates: start: 20120519, end: 20120606
  3. ITRACONAZOLE [Suspect]
     Indication: PROPHYLAXIS
     Route: 048
     Dates: start: 20120525, end: 20120606
  4. EVISTA [Concomitant]
     Route: 048
     Dates: start: 20120531, end: 20120606
  5. SULFAMETHOXAZOLE AND TRIMETHOPRIM [Suspect]
     Indication: PRODUCT USED FOR UNKNOWN INDICATION
     Route: 048
     Dates: start: 20120519, end: 20120606

REACTIONS (1)
  - DRUG ERUPTION [None]
